FAERS Safety Report 15429807 (Version 1)
Quarter: 2018Q3

REPORT INFORMATION
  Report Type: Spontaneous
  Country: US (occurrence: US)
  Receive Date: 20180926
  Receipt Date: 20180926
  Transmission Date: 20181010
  Serious: Yes (Death, Other)
  Sender: FDA-Public Use
  Company Number: US-AMGEN-USASP2018131242

PATIENT
  Sex: Male

DRUGS (1)
  1. NPLATE [Suspect]
     Active Substance: ROMIPLOSTIM
     Indication: MYELODYSPLASTIC SYNDROME
     Dosage: 250 MCG, UNK
     Route: 065
     Dates: start: 201711

REACTIONS (2)
  - Death [Fatal]
  - Off label use [Unknown]
